FAERS Safety Report 6564197-X (Version None)
Quarter: 2010Q1

REPORT INFORMATION
  Report Type: 
  Country: None (occurrence: None)
  Receive Date: 20100131
  Receipt Date: 20100128
  Transmission Date: 20100710
  Serious: No
  Sender: FDA-Public Use
  Company Number: US-ALLERGAN-1001140US

PATIENT
  Sex: Female

DRUGS (2)
  1. BOTOX COSMETIC [Suspect]
     Indication: SKIN WRINKLING
     Dosage: 20 UNITS, SINGLE
     Route: 030
     Dates: start: 20100126, end: 20100126
  2. DOXYCYCLINE [Concomitant]

REACTIONS (4)
  - EYELID OEDEMA [None]
  - EYELID SENSORY DISORDER [None]
  - HEADACHE [None]
  - INJECTION SITE SWELLING [None]
